FAERS Safety Report 7915199-X (Version None)
Quarter: 2011Q4

REPORT INFORMATION
  Report Type: 
  Country: None (occurrence: None)
  Receive Date: 20111115
  Receipt Date: 20111110
  Transmission Date: 20120403
  Serious: Yes (Death, Life-Threatening)
  Sender: FDA-Public Use
  Company Number: GB-PFIZER INC-2011102965

PATIENT
  Age: 43 Year
  Sex: Male
  Weight: 106 kg

DRUGS (13)
  1. SURMONTIL [Concomitant]
     Indication: DEPRESSION
     Dosage: UNK
     Dates: start: 20000601
  2. AMITRIPTYLINE HYDROCHLORIDE [Concomitant]
     Indication: DEPRESSION
     Dosage: 10 MG, UNK
     Dates: start: 20081211
  3. CLOTRIMAZOLE [Concomitant]
     Indication: ECZEMA
  4. IBUPROFEN [Concomitant]
     Indication: PAIN
     Dosage: 1200
     Dates: start: 20081211
  5. FEXOFENADINE [Concomitant]
     Indication: ANTIALLERGIC THERAPY
     Dosage: 120 DAILY
     Dates: start: 20081211
  6. SURMONTIL [Concomitant]
     Dosage: UNK
     Dates: start: 20021107
  7. CLOTRIMAZOLE [Concomitant]
     Indication: DERMATITIS CONTACT
     Dosage: DAILY
     Dates: start: 20000215
  8. NEBIDO [Concomitant]
     Indication: BLOOD FOLLICLE STIMULATING HORMONE DECREASED
  9. NEBIDO [Concomitant]
     Indication: HYPOGONADISM
     Dosage: 1000 MG, UNK
     Dates: start: 20081211
  10. SOMATROPIN [Suspect]
     Indication: HYPOPITUITARISM
     Dosage: 0.5 MG/DAY (7 INJECTIONS/WEEK)
     Route: 058
     Dates: start: 19980319
  11. NEBIDO [Concomitant]
     Indication: BLOOD LUTEINISING HORMONE DECREASED
  12. FLUOXETINE [Concomitant]
     Indication: DEPRESSION
     Dosage: 10 MG, UNK
     Dates: start: 20081211
  13. CALCIUM CARBONATE [Concomitant]
     Indication: VITAMIN D DEFICIENCY
     Dosage: 1 DF, UNK
     Dates: start: 20081211

REACTIONS (1)
  - DEATH [None]
